FAERS Safety Report 6434814-3 (Version None)
Quarter: 2009Q4

REPORT INFORMATION
  Report Type: 
  Country: None (occurrence: None)
  Receive Date: 20091109
  Receipt Date: 20091109
  Transmission Date: 20100525
  Serious: Yes (Other)
  Sender: FDA-Public Use
  Company Number: None

PATIENT
  Sex: Female
  Weight: 48.0813 kg

DRUGS (1)
  1. METHYLPHENIDATE HCL [Suspect]
     Indication: ATTENTION DEFICIT/HYPERACTIVITY DISORDER
     Dosage: 25 MG 4 TIMES PER DAY PO
     Route: 048
     Dates: start: 19940105, end: 20091106

REACTIONS (5)
  - ACTIVITIES OF DAILY LIVING IMPAIRED [None]
  - DYSARTHRIA [None]
  - MOVEMENT DISORDER [None]
  - MUSCULAR WEAKNESS [None]
  - SPEECH DISORDER [None]
